FAERS Safety Report 17619002 (Version 1)
Quarter: 2020Q2

REPORT INFORMATION
  Report Type: Spontaneous
  Country: IT (occurrence: IT)
  Receive Date: 20200403
  Receipt Date: 20200403
  Transmission Date: 20200713
  Serious: Yes (Hospitalization)
  Sender: FDA-Public Use
  Company Number: IT-UCBSA-2020012379

PATIENT
  Age: 59 Year
  Sex: Female

DRUGS (4)
  1. SEQUACOR [Suspect]
     Active Substance: BISOPROLOL
     Indication: DRUG ABUSE
     Dosage: 14 DOSAGE FORM, ONCE DAILY (QD)
     Route: 048
     Dates: start: 20200111, end: 20200111
  2. XANAX [Suspect]
     Active Substance: ALPRAZOLAM
     Indication: DRUG ABUSE
     Dosage: 10 DOSAGE FORM
     Route: 048
     Dates: start: 20200111, end: 20200111
  3. CARDIOASPIRIN [Suspect]
     Active Substance: ASPIRIN
     Indication: DRUG ABUSE
     Dosage: 6 DOSAGE FORM
     Route: 048
     Dates: start: 20200111, end: 20200111
  4. VIMPAT [Suspect]
     Active Substance: LACOSAMIDE
     Indication: DRUG ABUSE
     Dosage: 8 DOSAGE FORM, ONCE DAILY (QD)
     Route: 048
     Dates: start: 20200111, end: 20200111

REACTIONS (4)
  - Suicide attempt [Recovering/Resolving]
  - Drug abuse [Unknown]
  - Syncope [Recovering/Resolving]
  - Loss of consciousness [Recovering/Resolving]

NARRATIVE: CASE EVENT DATE: 20200111
